FAERS Safety Report 9160341 (Version 2)
Quarter: 2013Q1

REPORT INFORMATION
  Report Type: Spontaneous
  Country: GB (occurrence: None)
  Receive Date: 20130214
  Receipt Date: 20130219
  Transmission Date: 20140127
  Serious: Yes (Life-Threatening, Hospitalization)
  Sender: FDA-Public Use
  Company Number: THQ2013A01026

PATIENT
  Age: 30 Year
  Sex: Male

DRUGS (10)
  1. LANSOPRAZOLE (LANSOPRAZOLE) [Suspect]
     Dosage: 30 MG (30 MG, 1-2) 350 MG
     Route: 048
  2. LAMOTRIGINE [Suspect]
     Route: 048
  3. PARACETAMOL [Concomitant]
  4. CLARITHROMYCIN [Concomitant]
  5. LAMOTRIGINE [Concomitant]
  6. CLOZARIL (CLOZAPINE) [Concomitant]
  7. INSULIN [Concomitant]
  8. HYOSCINE [Concomitant]
  9. PARACETAMOL [Concomitant]
  10. CLARITHROMYCIN [Concomitant]

REACTIONS (10)
  - Diabetic ketoacidosis [None]
  - Pneumonia [None]
  - Sepsis [None]
  - Chest discomfort [None]
  - Hypophagia [None]
  - Diarrhoea [None]
  - Type 1 diabetes mellitus [None]
  - Neutrophil count increased [None]
  - General physical health deterioration [None]
  - White blood cell count increased [None]
